FAERS Safety Report 4350680-4 (Version None)
Quarter: 2004Q2

REPORT INFORMATION
  Report Type: 
  Country: None (occurrence: None)
  Receive Date: 20040427
  Receipt Date: 20040422
  Transmission Date: 20050107
  Serious: Yes (Hospitalization)
  Sender: FDA-Public Use
  Company Number: MK200403-0194-2

PATIENT
  Age: 35 Year
  Sex: Male

DRUGS (4)
  1. ANAFRANIL [Suspect]
     Indication: DEPRESSION
     Dosage: 150 MG
     Dates: start: 20031216, end: 20040111
  2. DEPAMIDE [Suspect]
     Dates: start: 20031216, end: 20040111
  3. NOZINAN [Suspect]
     Dates: start: 20031216, end: 20040111
  4. LEPTICUR [Suspect]
     Dates: start: 20031216, end: 20040111

REACTIONS (7)
  - ANXIETY [None]
  - BLOOD CREATINE PHOSPHOKINASE INCREASED [None]
  - CONFUSIONAL STATE [None]
  - DYSARTHRIA [None]
  - DYSURIA [None]
  - EXTRAPYRAMIDAL DISORDER [None]
  - OEDEMA PERIPHERAL [None]
